FAERS Safety Report 6866029-9 (Version None)
Quarter: 2010Q3

REPORT INFORMATION
  Report Type: 
  Country: None (occurrence: None)
  Receive Date: 20100722
  Receipt Date: 20100712
  Transmission Date: 20110219
  Serious: Yes (Other)
  Sender: FDA-Public Use
  Company Number: US-BAYER-201026328NA

PATIENT
  Age: 31 Year
  Sex: Female
  Weight: 84 kg

DRUGS (4)
  1. YAZ [Suspect]
     Indication: PREMENSTRUAL SYNDROME
     Route: 048
     Dates: start: 20100621, end: 20100623
  2. SINGULAIR [Concomitant]
  3. VITAMINS [Concomitant]
  4. TYLENOL [Concomitant]

REACTIONS (3)
  - ASTHMA [None]
  - DYSPNOEA [None]
  - PHARYNGEAL OEDEMA [None]
